FAERS Safety Report 11037296 (Version 1)
Quarter: 2015Q2

REPORT INFORMATION
  Report Type: Spontaneous
  Country: None (occurrence: None)
  Receive Date: 20150415
  Receipt Date: 20150415
  Transmission Date: 20150821
  Serious: No
  Sender: FDA-Public Use
  Company Number: None

PATIENT
  Age: 36 Year
  Sex: Female
  Weight: 72.58 kg

DRUGS (1)
  1. XULANE [Suspect]
     Active Substance: ETHINYL ESTRADIOL\NORELGESTROMIN
     Indication: HORMONE REPLACEMENT THERAPY
     Dosage: TRANS-DERMAL PATCH, WEEKLY, APPLIED AS MEDICATED PATCH TO SKIN
     Route: 062
     Dates: start: 20150406, end: 20150413

REACTIONS (5)
  - Acne [None]
  - Vaginal haemorrhage [None]
  - Muscle spasms [None]
  - Premenstrual syndrome [None]
  - Headache [None]

NARRATIVE: CASE EVENT DATE: 20150414
